FAERS Safety Report 8490872-6 (Version None)
Quarter: 2012Q2

REPORT INFORMATION
  Report Type: 
  Country: None (occurrence: None)
  Receive Date: 20120629
  Receipt Date: 20120629
  Transmission Date: 20120825
  Serious: Yes (Life-Threatening, Hospitalization, Disabling, Other)
  Sender: FDA-Public Use
  Company Number: None

PATIENT
  Sex: Female
  Weight: 65.7716 kg

DRUGS (1)
  1. SULFAMETHOXAZOLE AND TRIMETHOPRIM [Suspect]
     Indication: OEDEMA PERIPHERAL
     Dosage: 800/160 TABS - 2XDAY
     Route: 048
     Dates: start: 20120426

REACTIONS (2)
  - RASH [None]
  - PAIN [None]
